FAERS Safety Report 5726697-1 (Version None)
Quarter: 2008Q2

REPORT INFORMATION
  Report Type: 
  Country: None (occurrence: None)
  Receive Date: 20080502
  Receipt Date: 20080421
  Transmission Date: 20081010
  Serious: Yes (Other)
  Sender: FDA-Public Use
  Company Number: US-PFIZER INC-2007086408

PATIENT
  Sex: Female
  Weight: 75.3 kg

DRUGS (7)
  1. CHANTIX [Suspect]
     Dosage: TEXT:HALF TABLET
  2. LISINOPRIL [Concomitant]
     Dosage: DAILY DOSE:10MG
  3. LIPITOR [Concomitant]
     Dosage: DAILY DOSE:10MG
  4. DILTIAZEM [Concomitant]
     Dosage: DAILY DOSE:120MG
  5. HYDROCHLOROTHIAZIDE [Concomitant]
     Dosage: DAILY DOSE:12.5MG
  6. POTASSIUM CHLORIDE [Concomitant]
     Dosage: DAILY DOSE:10MEQ
  7. CALCIUM WITH VITAMIN D [Concomitant]

REACTIONS (5)
  - ABDOMINAL PAIN [None]
  - ABDOMINAL PAIN UPPER [None]
  - DIVERTICULUM [None]
  - FAECES DISCOLOURED [None]
  - HAEMORRHAGE [None]
